FAERS Safety Report 5940421-9 (Version None)
Quarter: 2008Q4

REPORT INFORMATION
  Report Type: 
  Country: None (occurrence: None)
  Receive Date: 20081030
  Receipt Date: 20081022
  Transmission Date: 20090506
  Serious: Yes (Other)
  Sender: FDA-Public Use
  Company Number: DSU-2008-01763

PATIENT
  Age: 53 Year
  Sex: Female

DRUGS (2)
  1. OLMESARTAN MEDOXOMIL [Suspect]
     Indication: DRUG USE FOR UNKNOWN INDICATION
     Dosage: 20 MG (20 MG, QD), PER ORAL
     Route: 048
     Dates: start: 20080812, end: 20080816
  2. DORFLEX (CAFFEINE, ORPHENADRINE CITRATE, METAMIZOLE) (CAFFEINE, ORPHEN [Concomitant]

REACTIONS (4)
  - APHONIA [None]
  - DYSPHONIA [None]
  - FLUID RETENTION [None]
  - OROPHARYNGEAL PAIN [None]
